FAERS Safety Report 10978483 (Version 2)
Quarter: 2015Q2

REPORT INFORMATION
  Report Type: Report from Study
  Country: NL (occurrence: NL)
  Receive Date: 20150402
  Receipt Date: 20150605
  Transmission Date: 20150821
  Serious: Yes (Hospitalization, Other)
  Sender: FDA-Public Use
  Company Number: PHHO2014NL005419

PATIENT
  Age: 58 Year
  Sex: Female
  Weight: 81.2 kg

DRUGS (3)
  1. EXEMESTANE. [Suspect]
     Active Substance: EXEMESTANE
     Indication: BREAST CANCER METASTATIC
     Route: 048
     Dates: start: 20140220, end: 20140407
  2. HYDROCHLOROTHIAZIDE SANDOZ [Suspect]
     Active Substance: HYDROCHLOROTHIAZIDE
     Indication: PRODUCT USED FOR UNKNOWN INDICATION
     Route: 065
     Dates: end: 20140409
  3. EVEROLIMUS [Suspect]
     Active Substance: EVEROLIMUS
     Indication: BREAST CANCER METASTATIC
     Dosage: 10 MG, UNK
     Route: 048
     Dates: start: 20140220, end: 20140407

REACTIONS (4)
  - Ascites [Recovered/Resolved]
  - Acute kidney injury [Recovering/Resolving]
  - Renal failure [Recovered/Resolved]
  - Urinary tract obstruction [Recovered/Resolved]

NARRATIVE: CASE EVENT DATE: 20140409
